FAERS Safety Report 7326998-X (Version None)
Quarter: 2011Q1

REPORT INFORMATION
  Report Type: 
  Country: None (occurrence: None)
  Receive Date: 20110222
  Receipt Date: 20100212
  Transmission Date: 20110831
  Serious: Yes (Congenital Anomaly)
  Sender: FDA-Public Use
  Company Number: 1098

PATIENT

DRUGS (3)
  1. ECONAZOLE NITRATE [Suspect]
     Dosage: TOPICAL
     Route: 061
  2. CICLOPIROX [Suspect]
  3. TERBINAFINE HCL [Suspect]

REACTIONS (3)
  - CLEFT LIP [None]
  - MATERNAL DRUGS AFFECTING FOETUS [None]
  - CLEFT PALATE [None]
